FAERS Safety Report 22135457 (Version 1)
Quarter: 2023Q1

REPORT INFORMATION
  Report Type: Report from Study
  Country: NL (occurrence: NL)
  Receive Date: 20230324
  Receipt Date: 20230324
  Transmission Date: 20230417
  Serious: Yes (Other)
  Sender: FDA-Public Use
  Company Number: NL-002147023-NVSC2023NL065295

PATIENT
  Sex: Female

DRUGS (2)
  1. LEQVIO [Suspect]
     Active Substance: INCLISIRAN SODIUM
     Indication: Type 2 diabetes mellitus
     Dosage: 1 UNK (PER 6 MONTH, 189MG/ML)
     Route: 058
  2. LEQVIO [Suspect]
     Active Substance: INCLISIRAN SODIUM
     Indication: Cardiovascular disorder

REACTIONS (4)
  - Lung neoplasm malignant [Unknown]
  - Adrenal gland cancer [Unknown]
  - Syncope [Unknown]
  - Product use in unapproved indication [Unknown]
